FAERS Safety Report 8063272-0 (Version None)
Quarter: 2012Q1

REPORT INFORMATION
  Report Type: 
  Country: None (occurrence: None)
  Receive Date: 20120123
  Receipt Date: 20120110
  Transmission Date: 20120608
  Serious: Yes (Hospitalization, Other)
  Sender: FDA-Public Use
  Company Number: US-MUTUAL PHARMACEUTICAL COMPANY, INC.-SFTM20120001

PATIENT
  Sex: Male
  Weight: 84.444 kg

DRUGS (7)
  1. SULFAMETHOXAZOLE AND TRIMETHOPRIM 800 MG/ 160 MG [Suspect]
     Indication: URINARY TRACT INFECTION
     Route: 065
     Dates: start: 20101223
  2. BENZONATATE [Concomitant]
     Indication: PRODUCT USED FOR UNKNOWN INDICATION
     Route: 048
  3. ASPIRIN [Concomitant]
     Indication: PRODUCT USED FOR UNKNOWN INDICATION
     Route: 048
  4. TAMSULOSIN SR [Concomitant]
     Indication: PRODUCT USED FOR UNKNOWN INDICATION
     Route: 048
  5. SIMVASTATIN [Concomitant]
     Indication: PRODUCT USED FOR UNKNOWN INDICATION
     Route: 048
  6. LORATADINE [Concomitant]
     Indication: HYPERSENSITIVITY
     Route: 048
  7. VARDENAFIL HYDROCHLORIDE (LEVITRA) [Concomitant]
     Indication: PRODUCT USED FOR UNKNOWN INDICATION
     Route: 048

REACTIONS (7)
  - DRUG HYPERSENSITIVITY [None]
  - LIVER FUNCTION TEST ABNORMAL [None]
  - CANDIDIASIS [None]
  - PYREXIA [None]
  - STEVENS-JOHNSON SYNDROME [None]
  - ASTHENIA [None]
  - EYE IRRITATION [None]
